FAERS Safety Report 8135158-4 (Version None)
Quarter: 2012Q1

REPORT INFORMATION
  Report Type: 
  Country: None (occurrence: None)
  Receive Date: 20120214
  Receipt Date: 20120209
  Transmission Date: 20120608
  Serious: No
  Sender: FDA-Public Use
  Company Number: US-PFIZER INC-2012036264

PATIENT
  Sex: Female
  Weight: 50 kg

DRUGS (3)
  1. PREMARIN [Suspect]
     Dosage: 0.5 MG, 2X/WEEK
     Route: 067
     Dates: end: 20111201
  2. VITAMIN D [Concomitant]
     Indication: HYPOVITAMINOSIS
     Dosage: 50000 IU, EVERY OTHER WEEK
  3. PREMARIN [Suspect]
     Indication: VULVOVAGINAL DRYNESS
     Dosage: 1 G, 2X/WEEK
     Route: 067
     Dates: start: 20110301

REACTIONS (3)
  - ALOPECIA [None]
  - BREAST TENDERNESS [None]
  - BREAST PAIN [None]
